FAERS Safety Report 14702823 (Version 1)
Quarter: 2018Q2

REPORT INFORMATION
  Report Type: Spontaneous
  Country: SE (occurrence: SE)
  Receive Date: 20180402
  Receipt Date: 20180402
  Transmission Date: 20180711
  Serious: Yes (Hospitalization)
  Sender: FDA-Public Use
  Company Number: SE-AMGEN-SWESP2018042276

PATIENT
  Age: 85 Year
  Sex: Female

DRUGS (8)
  1. KALCIPOS D [Concomitant]
     Active Substance: CALCIUM CARBONATE\CHOLECALCIFEROL
  2. PROLIA [Suspect]
     Active Substance: DENOSUMAB
     Indication: OSTEOPOROSIS
     Dosage: 60 MG, UNK
     Route: 058
     Dates: start: 201102
  3. BEHEPAN [Concomitant]
     Active Substance: HYDROXOCOBALAMIN
  4. BRINTELLIX [Concomitant]
     Active Substance: VORTIOXETINE HYDROBROMIDE
  5. VISCOTEARS [Concomitant]
     Active Substance: CARBOMER
  6. OMEPRAZOL [Concomitant]
     Active Substance: OMEPRAZOLE
  7. FURIX [Concomitant]
     Active Substance: FUROSEMIDE
  8. FOLACIN [Concomitant]
     Active Substance: FOLIC ACID

REACTIONS (1)
  - Atypical femur fracture [Not Recovered/Not Resolved]

NARRATIVE: CASE EVENT DATE: 20180302
